FAERS Safety Report 18042800 (Version 1)
Quarter: 2020Q3

REPORT INFORMATION
  Report Type: Spontaneous
  Country: US (occurrence: US)
  Receive Date: 20200717
  Receipt Date: 20200717
  Transmission Date: 20201103
  Serious: Yes (Death)
  Sender: FDA-Public Use
  Company Number: None

PATIENT
  Age: 58 Year
  Sex: Male
  Weight: 83 kg

DRUGS (10)
  1. ZINC SULFATE 220 MG PO BID [Concomitant]
     Dates: start: 20200623, end: 20200627
  2. METHYPREDNISOLONE 60 MG IV Q12HR [Concomitant]
     Dates: start: 20200623, end: 20200701
  3. REMDESIVIR. [Suspect]
     Active Substance: REMDESIVIR
     Indication: COVID-19 PNEUMONIA
     Route: 042
     Dates: start: 20200623, end: 20200627
  4. AZITHROMYCIN 500 MG IV X 1 [Concomitant]
     Dates: start: 20200622, end: 20200622
  5. ENOXAPARIN 80 MG SQ ONCE DAILY [Concomitant]
     Dates: start: 20200628, end: 20200630
  6. LANTUS 15 UNITS SQ DAILY [Concomitant]
     Dates: start: 20200626, end: 20200629
  7. CEFTRIAXONE 1 GM IV ONCE DAILLY [Concomitant]
     Dates: start: 20200622, end: 20200625
  8. LANTUS 20 UNTIS SQ BID [Concomitant]
     Dates: start: 20200629, end: 20200630
  9. AZITHROMYCIN 500 MG PO ONCE DAILY [Concomitant]
     Dates: start: 20200623, end: 20200626
  10. ENOXAPARIN 40  MG SQ ONCE DAILY [Concomitant]
     Dates: start: 20200623, end: 20200628

REACTIONS (3)
  - Pulmonary function test decreased [None]
  - Hypotension [None]
  - Hypoxia [None]

NARRATIVE: CASE EVENT DATE: 20200701
